FAERS Safety Report 20449354 (Version 3)
Quarter: 2022Q2

REPORT INFORMATION
  Report Type: Report from Study
  Country: RU (occurrence: RU)
  Receive Date: 20220209
  Receipt Date: 20220531
  Transmission Date: 20220720
  Serious: Yes (Other)
  Sender: FDA-Public Use
  Company Number: RU-SERVIER-S21010613

PATIENT

DRUGS (12)
  1. PEGASPARGASE [Suspect]
     Active Substance: PEGASPARGASE
     Indication: B-cell type acute leukaemia
     Dosage: 4100 U (2500 U/M?), ON DAY 3
     Route: 042
     Dates: start: 20210902, end: 20210902
  2. DEXAMETHASONE [Suspect]
     Active Substance: DEXAMETHASONE
     Indication: B-cell type acute leukaemia
     Dosage: 1 MG, BID
     Route: 048
     Dates: start: 20210831
  3. METHOTREXATE [Concomitant]
     Active Substance: METHOTREXATE
     Indication: B-cell type acute leukaemia
     Dosage: 12 MG, 1X/WEEK
     Route: 037
     Dates: start: 20210902
  4. CYTARABINE [Concomitant]
     Active Substance: CYTARABINE
     Indication: B-cell type acute leukaemia
     Dosage: 50 MG, 1X/WEEK
     Route: 037
     Dates: start: 20210902
  5. PREDNISOLONE [Concomitant]
     Active Substance: PREDNISOLONE
     Indication: B-cell type acute leukaemia
     Dosage: 10 MG, 1X/WEEK
     Route: 037
     Dates: start: 20210902
  6. DAUNORUBICIN [Concomitant]
     Active Substance: DAUNORUBICIN
     Indication: B-cell type acute leukaemia
     Dosage: 74 MG, QD
     Route: 037
     Dates: start: 20210907
  7. VINCRISTINE [Concomitant]
     Active Substance: VINCRISTINE
     Indication: B-cell type acute leukaemia
     Dosage: 2 MG, 1X/WEEK
     Route: 037
     Dates: start: 20210907
  8. COTRIMOXAZOLE [Concomitant]
     Active Substance: SULFAMETHOXAZOLE\TRIMETHOPRIM
     Indication: Pneumocystis jirovecii pneumonia
     Dosage: 480 MG, BID
     Route: 048
     Dates: start: 20210824, end: 20211014
  9. COTRIMOXAZOLE [Concomitant]
     Active Substance: SULFAMETHOXAZOLE\TRIMETHOPRIM
     Indication: Prophylaxis
  10. CHLORHEXIDINE [Concomitant]
     Active Substance: CHLORHEXIDINE
     Indication: Prophylaxis
     Dosage: 1 DF, TID
     Route: 048
     Dates: start: 20210824, end: 20211014
  11. CHLORHEXIDINE [Concomitant]
     Active Substance: CHLORHEXIDINE
     Indication: Stomatitis
  12. Almagel [Concomitant]
     Indication: Gastritis prophylaxis
     Dosage: 15 ML, BID
     Route: 048
     Dates: start: 20210831, end: 20210923

REACTIONS (6)
  - Hypofibrinogenaemia [Recovered/Resolved]
  - Hyperbilirubinaemia [Recovered/Resolved]
  - Hepatotoxicity [Recovered/Resolved]
  - Hepatosplenomegaly [Recovered/Resolved]
  - Lymphocyte count decreased [Recovered/Resolved]
  - Pneumonia [Recovered/Resolved]

NARRATIVE: CASE EVENT DATE: 20210916
